FAERS Safety Report 7873612-0 (Version None)
Quarter: 2011Q4

REPORT INFORMATION
  Report Type: 
  Country: None (occurrence: None)
  Receive Date: 20111030
  Receipt Date: 20110506
  Transmission Date: 20120403
  Serious: No
  Sender: FDA-Public Use
  Company Number: US-AMGEN-USASP2011023732

PATIENT
  Age: 11 Year
  Sex: Female

DRUGS (1)
  1. ENBREL [Suspect]
     Indication: JUVENILE ARTHRITIS
     Dosage: 15 MG, 2 TIMES/WK
     Dates: start: 20110101

REACTIONS (3)
  - INJECTION SITE PRURITUS [None]
  - INJECTION SITE INFLAMMATION [None]
  - INJECTION SITE ERYTHEMA [None]
